FAERS Safety Report 4441966-3 (Version None)
Quarter: 2004Q3

REPORT INFORMATION
  Report Type: 
  Country: None (occurrence: None)
  Receive Date: 20040901
  Receipt Date: 20040810
  Transmission Date: 20050211
  Serious: Yes (Hospitalization)
  Sender: FDA-Public Use
  Company Number: 2004-DE-04324GD

PATIENT
  Age: 84 Year
  Sex: Female

DRUGS (3)
  1. IPRATROPIUM-BROMIDE+SALBUTAMOL (COMBIVENT)(NR) (IPRATROPIUM -BR) [Suspect]
     Dosage: EVERY 6 HOURS
     Route: 055
  2. SPIRONOLACTONE [Concomitant]
  3. AMLODIPINE [Concomitant]

REACTIONS (17)
  - ADRENERGIC SYNDROME [None]
  - ANTICHOLINERGIC SYNDROME [None]
  - CHOREA [None]
  - CONFUSIONAL STATE [None]
  - DISORIENTATION [None]
  - DRUG TOXICITY [None]
  - DRY MOUTH [None]
  - HYPERVENTILATION [None]
  - MEDICATION ERROR [None]
  - MYDRIASIS [None]
  - NERVOUS SYSTEM DISORDER [None]
  - PUPILLARY REFLEX IMPAIRED [None]
  - RENAL FAILURE [None]
  - RESPIRATORY ALKALOSIS [None]
  - RESTLESSNESS [None]
  - SINUS TACHYCARDIA [None]
  - SPEECH DISORDER [None]
